FAERS Safety Report 5057620-3 (Version None)
Quarter: 2006Q3

REPORT INFORMATION
  Report Type: 
  Country: None (occurrence: None)
  Receive Date: 20060721
  Receipt Date: 20051227
  Transmission Date: 20061208
  Serious: No
  Sender: FDA-Public Use
  Company Number: US-GLAXOSMITHKLINE-A0587043A

PATIENT
  Age: 67 Year
  Sex: Male

DRUGS (11)
  1. AVANDIA [Suspect]
     Dosage: 4MG PER DAY
     Route: 048
     Dates: start: 20050601
  2. METFORMIN [Suspect]
     Dosage: 500MG TWICE PER DAY
     Dates: start: 20050601
  3. ALTACE [Concomitant]
  4. ATENOLOL [Concomitant]
  5. LIPITOR [Concomitant]
  6. GLUCOTROL [Concomitant]
  7. NEXIUM [Concomitant]
  8. TRIAMTERENE [Concomitant]
  9. LEVOXYL [Concomitant]
  10. DICLOFENAC [Concomitant]
  11. ASPIRIN [Concomitant]

REACTIONS (2)
  - DIARRHOEA [None]
  - NAUSEA [None]
